FAERS Safety Report 10211110 (Version 1)
Quarter: 2014Q2

REPORT INFORMATION
  Report Type: Spontaneous
  Country: US (occurrence: None)
  Receive Date: 20140530
  Receipt Date: 20140530
  Transmission Date: 20141212
  Serious: No
  Sender: FDA-Public Use
  Company Number: None

PATIENT
  Age: 71 Year
  Sex: Female

DRUGS (3)
  1. STANNOUS FLUORIDE [Suspect]
     Indication: DENTAL FLUORIDE THERAPY
     Dosage: 1/8 OZ DILUTED IN 1 OZ WATER, DAILY OR AS DIRECTED, ORAL RINSE
     Route: 048
     Dates: start: 20140420, end: 20140423
  2. STANNOUS FLUORIDE [Suspect]
     Indication: DENTAL CARIES
     Dosage: 1/8 OZ DILUTED IN 1 OZ WATER, DAILY OR AS DIRECTED, ORAL RINSE
     Route: 048
     Dates: start: 20140420, end: 20140423
  3. STANNOUS FLUORIDE [Suspect]
     Indication: PROPHYLAXIS
     Dosage: 1/8 OZ DILUTED IN 1 OZ WATER, DAILY OR AS DIRECTED, ORAL RINSE
     Route: 048
     Dates: start: 20140420, end: 20140423

REACTIONS (11)
  - Burning sensation [None]
  - Hypoaesthesia [None]
  - Hypoaesthesia oral [None]
  - Hypoaesthesia oral [None]
  - Hypoaesthesia oral [None]
  - Hypoaesthesia oral [None]
  - Tooth discolouration [None]
  - Oral mucosal blistering [None]
  - Oral pruritus [None]
  - Hypoaesthesia [None]
  - Toothache [None]
